FAERS Safety Report 12535295 (Version 1)
Quarter: 2016Q3

REPORT INFORMATION
  Report Type: Spontaneous
  Country: US (occurrence: None)
  Receive Date: 20160706
  Receipt Date: 20160706
  Transmission Date: 20161109
  Serious: Yes (Hospitalization, Other)
  Sender: FDA-Public Use
  Company Number: None

PATIENT
  Age: 47 Year
  Sex: Male
  Weight: 65 kg

DRUGS (13)
  1. POSACONAZOLE [Concomitant]
     Active Substance: POSACONAZOLE
  2. ALBUTEROL. [Concomitant]
     Active Substance: ALBUTEROL
  3. VORICONAZOLE. [Concomitant]
     Active Substance: VORICONAZOLE
  4. CARVEDILOL. [Concomitant]
     Active Substance: CARVEDILOL
  5. MEROPENEM. [Concomitant]
     Active Substance: MEROPENEM
  6. TEDIZOLID [Suspect]
     Active Substance: TEDIZOLID
     Indication: MYCOBACTERIAL INFECTION
     Route: 048
     Dates: start: 20150311
  7. AZITHROMYCIN ANHYDROUS. [Concomitant]
     Active Substance: AZITHROMYCIN ANHYDROUS
  8. LORAZEPAM. [Concomitant]
     Active Substance: LORAZEPAM
  9. METOCLOPRAMIDE. [Suspect]
     Active Substance: METOCLOPRAMIDE
     Indication: GASTROINTESTINAL DISORDER
     Dates: start: 2012, end: 20150318
  10. AMIKACIN [Concomitant]
     Active Substance: AMIKACIN
  11. CLOFAZIMINE [Concomitant]
     Active Substance: CLOFAZIMINE
  12. ETHAMBUTOL [Concomitant]
     Active Substance: ETHAMBUTOL HYDROCHLORIDE
  13. HYDRALAZINE [Concomitant]
     Active Substance: HYDRALAZINE HYDROCHLORIDE

REACTIONS (6)
  - Acute respiratory distress syndrome [None]
  - Vision blurred [None]
  - Mental status changes [None]
  - Oxygen consumption increased [None]
  - Muscle rigidity [None]
  - Hypoaesthesia [None]

NARRATIVE: CASE EVENT DATE: 20150318
